FAERS Safety Report 5145918-X (Version None)
Quarter: 2006Q4

REPORT INFORMATION
  Report Type: 
  Country: None (occurrence: None)
  Receive Date: 20061102
  Receipt Date: 20061020
  Transmission Date: 20070319
  Serious: Yes (Life-Threatening, Hospitalization, Other)
  Sender: FDA-Public Use
  Company Number: 2006088058

PATIENT
  Age: 74 Year
  Sex: Male
  Weight: 82 kg

DRUGS (7)
  1. LYRICA [Suspect]
     Indication: NEURALGIA
     Dosage: 150 MG (75 MG, 2 IN 1 D), ORAL
     Route: 048
     Dates: start: 20060705, end: 20060710
  2. LYRICA [Suspect]
     Indication: NEUROPATHY
     Dosage: 150 MG (75 MG, 2 IN 1 D), ORAL
     Route: 048
     Dates: start: 20060705, end: 20060710
  3. IXEL (MILNACIPRAN) [Concomitant]
  4. CLONAZEPAM [Concomitant]
  5. DURAGESIC-100 [Concomitant]
  6. ACETAMINOPHEN W/ PROPOXYPHENE HCL [Concomitant]
  7. TRILEPTAL [Concomitant]

REACTIONS (3)
  - MYOCLONUS [None]
  - PULMONARY OEDEMA [None]
  - RESPIRATORY FAILURE [None]
